FAERS Safety Report 14655148 (Version 1)
Quarter: 2018Q1

REPORT INFORMATION
  Report Type: Spontaneous
  Country: US (occurrence: US)
  Receive Date: 20180319
  Receipt Date: 20180319
  Transmission Date: 20180509
  Serious: No
  Sender: FDA-Public Use
  Company Number: US-PFIZER INC-2018110429

PATIENT
  Age: 47 Year
  Sex: Female
  Weight: 70.31 kg

DRUGS (2)
  1. CYMBALTA [Suspect]
     Active Substance: DULOXETINE HYDROCHLORIDE
     Indication: NEURALGIA
     Dosage: 60 MG, 2X/DAY
     Route: 048
  2. GABAPENTIN. [Suspect]
     Active Substance: GABAPENTIN
     Indication: NEURALGIA
     Dosage: 600 MG TABLET BY MOUTH ONE AND HALF TABLET THREE TIMES A DAY.
     Route: 048

REACTIONS (2)
  - Somnolence [Unknown]
  - Product use in unapproved indication [Unknown]
